FAERS Safety Report 7656451-5 (Version None)
Quarter: 2011Q3

REPORT INFORMATION
  Report Type: 
  Country: None (occurrence: None)
  Receive Date: 20110804
  Receipt Date: 20110728
  Transmission Date: 20111222
  Serious: Yes (Life-Threatening, Hospitalization, Other)
  Sender: FDA-Public Use
  Company Number: BR-ASTRAZENECA-2011SE45411

PATIENT
  Age: 46 Year
  Sex: Female

DRUGS (5)
  1. KALETRA [Interacting]
     Indication: HIV INFECTION
     Route: 048
  2. BRILINTA [Interacting]
     Indication: ACUTE MYOCARDIAL INFARCTION
     Route: 048
     Dates: start: 20110701, end: 20110701
  3. LAMIVUDINE [Concomitant]
     Indication: HIV INFECTION
     Route: 048
  4. BRILINTA [Suspect]
     Indication: ACUTE CORONARY SYNDROME
     Route: 048
     Dates: start: 20110701, end: 20110701
  5. ZIDOVUDINE [Concomitant]
     Indication: HIV INFECTION
     Route: 048

REACTIONS (8)
  - HAEMODYNAMIC INSTABILITY [None]
  - HYPOVOLAEMIC SHOCK [None]
  - RETROPERITONEAL HAEMATOMA [None]
  - NEPHRECTOMY [None]
  - DRUG INTERACTION [None]
  - RENAL CYST HAEMORRHAGE [None]
  - PNEUMONIA [None]
  - HAEMOGLOBIN DECREASED [None]
